FAERS Safety Report 6195031-8 (Version None)
Quarter: 2009Q2

REPORT INFORMATION
  Report Type: 
  Country: None (occurrence: None)
  Receive Date: 20090519
  Receipt Date: 20090515
  Transmission Date: 20091009
  Serious: Yes (Hospitalization)
  Sender: FDA-Public Use
  Company Number: B0574323A

PATIENT
  Sex: Male

DRUGS (6)
  1. LAPATINIB [Suspect]
     Dosage: 18750MG PER DAY
     Route: 048
     Dates: start: 20090428
  2. DOCETAXEL [Suspect]
     Dosage: 145MG EVERY 3 WEEKS
     Route: 042
     Dates: start: 20090428
  3. AMOXICILLIN AND CLAVULANATE POTASSIUM [Concomitant]
     Dosage: 1875MG PER DAY
     Dates: start: 20090512
  4. ALLOPURINOL [Concomitant]
     Dosage: 300MG PER DAY
  5. PROPRANOLOL [Concomitant]
     Dosage: 20MG PER DAY
     Dates: start: 20020101
  6. PRAMIPEXOLE DIHYDROCHLORIDE [Concomitant]
     Dosage: 1.5MG PER DAY
     Dates: start: 20020101

REACTIONS (11)
  - ARTHRALGIA [None]
  - ASTHENIA [None]
  - BODY TEMPERATURE INCREASED [None]
  - COUGH [None]
  - CREPITATIONS [None]
  - DYSPNOEA [None]
  - MALAISE [None]
  - MYALGIA [None]
  - PNEUMONITIS [None]
  - RHONCHI [None]
  - WEIGHT DECREASED [None]
